FAERS Safety Report 11028234 (Version 6)
Quarter: 2017Q3

REPORT INFORMATION
  Report Type: Spontaneous
  Country: US (occurrence: US)
  Receive Date: 20150414
  Receipt Date: 20170807
  Transmission Date: 20171127
  Serious: Yes (Hospitalization, Disabling, Other)
  Sender: FDA-Public Use
  Company Number: US-009507513-1504USA010662

PATIENT
  Sex: Male

DRUGS (4)
  1. PROPECIA [Suspect]
     Active Substance: FINASTERIDE
     Indication: ALOPECIA
     Dosage: 1 MG, QD
     Route: 048
     Dates: start: 1998
  2. FINASTERIDE. [Suspect]
     Active Substance: FINASTERIDE
     Indication: ALOPECIA
     Dosage: 1 MG, QD
     Route: 048
     Dates: start: 2007, end: 2010
  3. FINASTERIDE. [Suspect]
     Active Substance: FINASTERIDE
     Indication: ANDROGENETIC ALOPECIA
  4. PROPECIA [Suspect]
     Active Substance: FINASTERIDE
     Indication: ANDROGENETIC ALOPECIA
     Dosage: 1 MG, QD
     Route: 048
     Dates: start: 20031230, end: 2007

REACTIONS (21)
  - Psychosexual disorder [Not Recovered/Not Resolved]
  - Erectile dysfunction [Not Recovered/Not Resolved]
  - Penis injury [Unknown]
  - Sexual dysfunction [Not Recovered/Not Resolved]
  - Depression [Not Recovered/Not Resolved]
  - Device failure [Recovered/Resolved]
  - Endocrine disorder [Unknown]
  - Hypertension [Unknown]
  - Brain injury [Unknown]
  - Hyperlipidaemia [Unknown]
  - Fungal infection [Unknown]
  - Peyronie^s disease [Not Recovered/Not Resolved]
  - Penile size reduced [Unknown]
  - Ejaculation disorder [Unknown]
  - Anxiety [Not Recovered/Not Resolved]
  - Loss of libido [Unknown]
  - Hormone level abnormal [Unknown]
  - Painful ejaculation [Unknown]
  - Bipolar I disorder [Not Recovered/Not Resolved]
  - Alcohol withdrawal syndrome [Unknown]
  - Colitis [Unknown]

NARRATIVE: CASE EVENT DATE: 1998
